FAERS Safety Report 22080519 (Version 1)
Quarter: 2023Q1

REPORT INFORMATION
  Report Type: Spontaneous
  Country: US (occurrence: None)
  Receive Date: 20230309
  Receipt Date: 20230309
  Transmission Date: 20230417
  Serious: No
  Sender: FDA-Public Use
  Company Number: None

PATIENT
  Age: 52 Year
  Sex: Female
  Weight: 66.6 kg

DRUGS (1)
  1. QUVIVIQ [Suspect]
     Active Substance: DARIDOREXANT
     Indication: Insomnia
     Dosage: OTHER QUANTITY : 1 TABLET(S);?FREQUENCY : AT BEDTIME;?
     Route: 048
     Dates: start: 20230305, end: 20230309

REACTIONS (8)
  - Treatment failure [None]
  - Nausea [None]
  - Diarrhoea [None]
  - Lethargy [None]
  - Confusional state [None]
  - Abnormal dreams [None]
  - Nightmare [None]
  - Hallucination, visual [None]

NARRATIVE: CASE EVENT DATE: 20230307
